FAERS Safety Report 10184645 (Version 3)
Quarter: 2014Q3

REPORT INFORMATION
  Report Type: Spontaneous
  Country: US (occurrence: None)
  Receive Date: 20140519
  Receipt Date: 20140916
  Transmission Date: 20150326
  Serious: Yes (Hospitalization)
  Sender: FDA-Public Use
  Company Number: US-000817

PATIENT
  Age: 66 Year
  Sex: Female

DRUGS (14)
  1. CHOLESTYRAMINE. [Concomitant]
     Active Substance: CHOLESTYRAMINE
  2. QUESTRAN [Concomitant]
     Active Substance: CHOLESTYRAMINE
  3. LOMOTIL [Concomitant]
     Active Substance: ATROPINE SULFATE\DIPHENOXYLATE HYDROCHLORIDE
  4. HYDROCHLOROTHIAZIDE. [Concomitant]
     Active Substance: HYDROCHLOROTHIAZIDE
  5. LISINOPRIL. [Concomitant]
     Active Substance: LISINOPRIL
  6. ALPRAZOLAM. [Concomitant]
     Active Substance: ALPRAZOLAM
  7. SOLUTIONS FOR PARENTERAL NUTRITION [Concomitant]
     Active Substance: AMINO ACIDS\DEXTROSE\ELECTROLYTES NOS
  8. SIMVASTATIN. [Concomitant]
     Active Substance: SIMVASTATIN
  9. POTASSIUM CHLORIDE. [Concomitant]
     Active Substance: POTASSIUM CHLORIDE
  10. ZYPREXA [Concomitant]
     Active Substance: OLANZAPINE
  11. HYDROCODONE [Concomitant]
     Active Substance: HYDROCODONE
  12. IMODIUM [Concomitant]
     Active Substance: LOPERAMIDE HYDROCHLORIDE
  13. GATTEX [Suspect]
     Active Substance: TEDUGLUTIDE\WATER
     Indication: SHORT-BOWEL SYNDROME
     Dosage: 0.38 ML QD, STREN/VOLUM: 0.38 ML FREQU: ONCE A DAY SUBCUTANEOUS
     Route: 058
     Dates: start: 20130830, end: 2013
  14. METOPROLOL [Concomitant]
     Active Substance: METOPROLOL

REACTIONS (10)
  - Diarrhoea [None]
  - Hyperhidrosis [None]
  - Weight decreased [None]
  - Asthenia [None]
  - Abdominal pain [None]
  - Oedema peripheral [None]
  - Dehydration [None]
  - Influenza like illness [None]
  - Dry mouth [None]
  - Muscle spasms [None]

NARRATIVE: CASE EVENT DATE: 201309
